FAERS Safety Report 4798061-3 (Version None)
Quarter: 2005Q4

REPORT INFORMATION
  Report Type: 
  Country: None (occurrence: None)
  Receive Date: 20051007
  Receipt Date: 20051007
  Transmission Date: 20060501
  Serious: No
  Sender: FDA-Public Use
  Company Number: None

PATIENT
  Age: 25 Year
  Sex: Female

DRUGS (1)
  1. OMNIPAQUE 300 [Suspect]
     Indication: SCAN BRAIN
     Dosage: 65 CC'S LT ARM IV
     Route: 042

REACTIONS (2)
  - NAUSEA [None]
  - VOMITING [None]
